FAERS Safety Report 20985882 (Version 1)
Quarter: 2022Q2

REPORT INFORMATION
  Report Type: Spontaneous
  Country: ES (occurrence: ES)
  Receive Date: 20220621
  Receipt Date: 20220621
  Transmission Date: 20220721
  Serious: Yes (Other)
  Sender: FDA-Public Use
  Company Number: ES-STRIDES ARCOLAB LIMITED-2022SP007405

PATIENT

DRUGS (37)
  1. PREDNISOLONE [Suspect]
     Active Substance: PREDNISOLONE
     Indication: Acute lymphocytic leukaemia
     Dosage: UNK (INDUCTION IA PHASE )
     Route: 048
  2. PREDNISOLONE [Suspect]
     Active Substance: PREDNISOLONE
     Dosage: UNK (INTRAVENOUS PUSH) (INDUCTION IA PHASE)
     Route: 050
  3. PREDNISOLONE [Suspect]
     Active Substance: PREDNISOLONE
     Dosage: UNK (INDUCTION IA PHASE )
     Route: 037
  4. PREDNISOLONE [Suspect]
     Active Substance: PREDNISOLONE
     Dosage: UNK (INDUCTION IB PHASE )
     Route: 037
  5. PREDNISOLONE [Suspect]
     Active Substance: PREDNISOLONE
     Dosage: UNK (CONSOLIDATION PHASE   )
     Route: 037
  6. PREDNISOLONE [Suspect]
     Active Substance: PREDNISOLONE
     Dosage: UNK (REINDUCTION PHASE )
     Route: 037
  7. PREDNISOLONE [Suspect]
     Active Substance: PREDNISOLONE
     Dosage: UNK (MAINTENANCE PHASE)
     Route: 037
  8. DOXORUBICIN [Suspect]
     Active Substance: DOXORUBICIN
     Indication: Acute lymphocytic leukaemia
     Dosage: UNK (INTRAVENOUS INFUSION)  (REINDUCTION PHASE; OVER 1 HOUR)
     Route: 050
  9. METHOTREXATE [Suspect]
     Active Substance: METHOTREXATE
     Indication: Acute lymphocytic leukaemia
     Dosage: UNK (INDUCTION IA PHASE   )
     Route: 037
  10. METHOTREXATE [Suspect]
     Active Substance: METHOTREXATE
     Dosage: UNK (INDUCTION IB PHASE )
     Route: 037
  11. METHOTREXATE [Suspect]
     Active Substance: METHOTREXATE
     Dosage: UNK (CONSOLIDATION PHASE)
     Route: 037
  12. METHOTREXATE [Suspect]
     Active Substance: METHOTREXATE
     Dosage: UNK (REINDUCTION PHASE   )
     Route: 037
  13. METHOTREXATE [Suspect]
     Active Substance: METHOTREXATE
     Dosage: UNK (MAINTENANCE PHASE)
     Route: 037
  14. METHOTREXATE [Suspect]
     Active Substance: METHOTREXATE
     Dosage: UNK (INTRAVENOUS INFUSION ) (CONSOLIDATION PHASE; OVER 24 HOURS) (THERAPY COMPLETED PRIOR TO ONSET O
     Route: 050
  15. METHOTREXATE [Suspect]
     Active Substance: METHOTREXATE
     Dosage: UNK (MAINTENANCE PHASE )
     Route: 048
  16. DEXAMETHASONE [Suspect]
     Active Substance: DEXAMETHASONE
     Indication: Acute lymphocytic leukaemia
     Dosage: UNK (REINDUCTION PHASE)
     Route: 048
  17. DEXAMETHASONE [Suspect]
     Active Substance: DEXAMETHASONE
     Dosage: UNK (INTRAVENOUS PUSH) (REINDUCTION PHASE)
     Route: 050
  18. VINCRISTINE [Suspect]
     Active Substance: VINCRISTINE
     Indication: Acute lymphocytic leukaemia
     Dosage: UNK (INTRAVENOUS PUSH)(INDUCTION IA PHASE)
     Route: 050
  19. VINCRISTINE [Suspect]
     Active Substance: VINCRISTINE
     Dosage: UNK (INTRAVENOUS PUSH) (REINDUCTION PHASE)
     Route: 050
  20. DAUNORUBICIN [Suspect]
     Active Substance: DAUNORUBICIN
     Indication: Acute lymphocytic leukaemia
     Dosage: UNK (INTRAVENOUS INFUSION ) (INDUCTION IA PHASE)
     Route: 050
  21. ASPARAGINASE [Suspect]
     Active Substance: ASPARAGINASE
     Indication: Acute lymphocytic leukaemia
     Dosage: UNK (INDUCTION IA PHASE )
     Route: 030
  22. ASPARAGINASE [Suspect]
     Active Substance: ASPARAGINASE
     Dosage: UNK (REINDUCTION PHASE   )
     Route: 030
  23. CYTARABINE [Suspect]
     Active Substance: CYTARABINE
     Indication: Acute lymphocytic leukaemia
     Dosage: UNK (INDUCTION IA PHASE)
     Route: 037
  24. CYTARABINE [Suspect]
     Active Substance: CYTARABINE
     Dosage: UNK, (INTRAVENOUS INFUSION) (INDUCTION 1B PHASE)
     Route: 050
  25. CYTARABINE [Suspect]
     Active Substance: CYTARABINE
     Dosage: UNK (INDUCTION IB PHASE )
     Route: 037
  26. CYTARABINE [Suspect]
     Active Substance: CYTARABINE
     Dosage: UNK (CONSOLIDATION PHASE   )
     Route: 037
  27. CYTARABINE [Suspect]
     Active Substance: CYTARABINE
     Dosage: UNK (REINDUCTION PHASE )
     Route: 037
  28. CYTARABINE [Suspect]
     Active Substance: CYTARABINE
     Dosage: UNK, INTRAVENOUS PUSH, REINDUCTION PHASE
     Route: 050
  29. CYTARABINE [Suspect]
     Active Substance: CYTARABINE
     Dosage: UNK (MAINTENANCE PHASE)
     Route: 037
  30. CYCLOPHOSPHAMIDE [Suspect]
     Active Substance: CYCLOPHOSPHAMIDE
     Indication: Acute lymphocytic leukaemia
     Dosage: UNK (INTRAVENOUS INFUSION) (INDUCTION IB PHASE; OVER 1 HOUR )
     Route: 050
  31. CYCLOPHOSPHAMIDE [Suspect]
     Active Substance: CYCLOPHOSPHAMIDE
     Dosage: UNK (INTRAVENOUS INFUSION) (REINDUCTION PHASE; OVER 1 HOUR )
     Route: 050
  32. MERCAPTOPURINE [Suspect]
     Active Substance: MERCAPTOPURINE
     Indication: Acute lymphocytic leukaemia
     Dosage: UNK (INDUCTION IB PHASE )
     Route: 048
  33. MERCAPTOPURINE [Suspect]
     Active Substance: MERCAPTOPURINE
     Dosage: UNK (CONSOLIDATION PHASE)
     Route: 048
  34. MERCAPTOPURINE [Suspect]
     Active Substance: MERCAPTOPURINE
     Dosage: UNK (MAINTENANCE PHASE)
     Route: 048
  35. THIOGUANINE ANHYDROUS [Suspect]
     Active Substance: THIOGUANINE ANHYDROUS
     Indication: Acute lymphocytic leukaemia
     Dosage: UNK (REINDUCTION PHASE )
     Route: 048
  36. PEG/L-ASPARAGINASE [Suspect]
     Active Substance: PEGASPARGASE
     Indication: Acute lymphocytic leukaemia
     Dosage: UNK (MAINTENANCE PHASE)
     Route: 030
  37. LEUCOVORIN [Concomitant]
     Active Substance: LEUCOVORIN
     Indication: Prophylaxis
     Dosage: UNK
     Route: 065

REACTIONS (1)
  - Embolism venous [Unknown]
